FAERS Safety Report 4408258-X (Version None)
Quarter: 2004Q3

REPORT INFORMATION
  Report Type: 
  Country: None (occurrence: None)
  Receive Date: 20040722
  Receipt Date: 20040709
  Transmission Date: 20050211
  Serious: Yes (Hospitalization, Disabling)
  Sender: FDA-Public Use
  Company Number: 2004_000054

PATIENT
  Age: 58 Year
  Sex: Male
  Weight: 50 kg

DRUGS (5)
  1. CYTARABINE [Suspect]
     Indication: MENINGITIS
     Dosage: 50 MG; TWICE A WEEK; INTRATHECAL
     Route: 037
     Dates: start: 20040312, end: 20040528
  2. THYROXIN [Concomitant]
  3. CITALOPRAM [Concomitant]
  4. HYDROCORTISONE [Concomitant]
  5. FLUDROCORTISONE ACETATE [Concomitant]

REACTIONS (4)
  - ISCHAEMIC NEUROPATHY [None]
  - NERVOUS SYSTEM DISORDER [None]
  - NUCLEAR MAGNETIC RESONANCE IMAGING BRAIN ABNORMAL [None]
  - SPINAL CORD DISORDER [None]
